FAERS Safety Report 5255192-1 (Version None)
Quarter: 2007Q1

REPORT INFORMATION
  Report Type: 
  Country: None (occurrence: None)
  Receive Date: 20070305
  Receipt Date: 20070219
  Transmission Date: 20070707
  Serious: Yes (Other)
  Sender: FDA-Public Use
  Company Number: PHHO2006US06383

PATIENT
  Age: 6 Year
  Sex: Male
  Weight: 21.6 kg

DRUGS (1)
  1. FOCALIN XR 10MG V 20MG V 30MG V PLACEBO [Suspect]
     Indication: ATTENTION DEFICIT/HYPERACTIVITY DISORDER
     Dosage: 30 MG, QD
     Route: 048
     Dates: start: 20060323, end: 20060410

REACTIONS (6)
  - CRYING [None]
  - DEPRESSED MOOD [None]
  - DEPRESSION [None]
  - HALLUCINATION [None]
  - MUSCULOSKELETAL STIFFNESS [None]
  - SOCIAL AVOIDANT BEHAVIOUR [None]
